FAERS Safety Report 4280677-4 (Version None)
Quarter: 2004Q1

REPORT INFORMATION
  Report Type: 
  Country: None (occurrence: None)
  Receive Date: 20040127
  Receipt Date: 20040115
  Transmission Date: 20041129
  Serious: Yes (Hospitalization)
  Sender: FDA-Public Use
  Company Number: 04P-056-0247287-00

PATIENT
  Age: 10 Year
  Sex: Male

DRUGS (5)
  1. DEPAKENE [Suspect]
     Indication: ENCEPHALOPATHY
     Dosage: 500 MG, 2 IN 1 D, ORAL
     Route: 048
     Dates: start: 19950101, end: 20031110
  2. DEPACON [Suspect]
     Indication: STATUS EPILEPTICUS
     Dosage: 1000 MG, 1 IN 1 D, INTRAVENOUS
     Route: 042
     Dates: start: 20031111, end: 20031112
  3. LAMOTRIGINE [Suspect]
     Dosage: 15 MG, 2 IN 1 D, ORAL
     Route: 048
     Dates: start: 20030711, end: 20031110
  4. GARDENAL [Concomitant]
  5. DIAZEPAM [Concomitant]

REACTIONS (8)
  - COMA HEPATIC [None]
  - DRUG LEVEL INCREASED [None]
  - HEPATIC FAILURE [None]
  - HEPATOCELLULAR DAMAGE [None]
  - NEUTROPHIL COUNT INCREASED [None]
  - STATUS EPILEPTICUS [None]
  - URINARY TRACT INFECTION [None]
  - WHITE BLOOD CELL COUNT INCREASED [None]
